FAERS Safety Report 12784567 (Version 1)
Quarter: 2016Q3

REPORT INFORMATION
  Report Type: Spontaneous
  Country: FR (occurrence: FR)
  Receive Date: 20160927
  Receipt Date: 20160927
  Transmission Date: 20161109
  Serious: Yes (Hospitalization)
  Sender: FDA-Public Use
  Company Number: FR-JNJFOC-20160920016

PATIENT
  Age: 88 Year
  Sex: Male

DRUGS (12)
  1. HALDOL [Concomitant]
     Active Substance: HALOPERIDOL
     Route: 048
     Dates: end: 20160804
  2. NORSET [Concomitant]
     Active Substance: MIRTAZAPINE
     Route: 048
  3. HYTRINE [Concomitant]
     Route: 048
  4. AMLOR [Concomitant]
     Active Substance: AMLODIPINE BESYLATE
     Route: 048
  5. PROPRANOLOL [Concomitant]
     Active Substance: PROPRANOLOL\PROPRANOLOL HYDROCHLORIDE
     Dosage: HALF DOSE
     Route: 048
  6. RISPERDAL [Suspect]
     Active Substance: RISPERIDONE
     Indication: ABNORMAL BEHAVIOUR
     Route: 048
     Dates: start: 20160804, end: 201608
  7. HYPERIUM [Concomitant]
     Active Substance: RILMENIDINE PHOSPHATE
     Route: 048
     Dates: end: 20160804
  8. SERESTA [Concomitant]
     Active Substance: OXAZEPAM
     Route: 048
  9. BIPRETERAX [Concomitant]
     Active Substance: INDAPAMIDE\PERINDOPRIL
     Indication: HYPERTENSION
     Route: 048
  10. ALLOPURINOL. [Concomitant]
     Active Substance: ALLOPURINOL
     Route: 048
  11. TAHOR [Concomitant]
     Active Substance: ATORVASTATIN CALCIUM
     Route: 048
  12. DIFFU K [Concomitant]
     Active Substance: POTASSIUM CHLORIDE
     Route: 048

REACTIONS (4)
  - Lymphopenia [Recovered/Resolved]
  - Agranulocytosis [Recovered/Resolved]
  - Leukopenia [Recovered/Resolved]
  - Respiratory distress [Unknown]

NARRATIVE: CASE EVENT DATE: 20160810
